FAERS Safety Report 12603899 (Version 1)
Quarter: 2016Q3

REPORT INFORMATION
  Report Type: Spontaneous
  Country: US (occurrence: US)
  Receive Date: 20160728
  Receipt Date: 20160728
  Transmission Date: 20161109
  Serious: No
  Sender: FDA-Public Use
  Company Number: US-AKRIMAX-TIR-2016-0608

PATIENT
  Age: 66 Year
  Sex: Female
  Weight: 67.19 kg

DRUGS (2)
  1. GENERIC PLAVIX [Concomitant]
     Active Substance: CLOPIDOGREL BISULFATE
     Indication: FACTOR V LEIDEN MUTATION
  2. TIROSINT [Suspect]
     Active Substance: LEVOTHYROXINE SODIUM
     Indication: AUTOIMMUNE THYROIDITIS
     Dosage: ONCE DAILY
     Route: 048
     Dates: start: 201605, end: 20160517

REACTIONS (5)
  - Cardiac flutter [Recovering/Resolving]
  - Hyperhidrosis [Recovering/Resolving]
  - Abdominal pain upper [Recovering/Resolving]
  - Dizziness [Recovering/Resolving]
  - Feeling jittery [Recovering/Resolving]

NARRATIVE: CASE EVENT DATE: 201605
